FAERS Safety Report 7620731-X (Version None)
Quarter: 2011Q3

REPORT INFORMATION
  Report Type: 
  Country: None (occurrence: None)
  Receive Date: 20110719
  Receipt Date: 20110711
  Transmission Date: 20111222
  Serious: Yes (Congenital Anomaly)
  Sender: FDA-Public Use
  Company Number: FR-GLAXOSMITHKLINE-B0732085A

PATIENT
  Sex: Male
  Weight: 3.4 kg

DRUGS (8)
  1. FERROUS SULFATE W/ VITAMIN C TAB [Suspect]
     Indication: ANAEMIA
     Dosage: 1U TWICE PER DAY
     Route: 064
     Dates: start: 20100329
  2. PROGESTERONE [Suspect]
     Dosage: 200U AT NIGHT
     Route: 064
     Dates: start: 20100109, end: 20100110
  3. ACETAMINOPHEN [Suspect]
     Indication: UTERINE HYPERTONUS
     Dosage: 500MG SIX TIMES PER DAY
     Route: 064
     Dates: start: 20100109, end: 20100110
  4. UVEDOSE [Suspect]
     Dosage: 1AMP SINGLE DOSE
     Route: 064
     Dates: start: 20100216, end: 20100216
  5. TAMIFLU [Suspect]
     Indication: INFLUENZA
     Dosage: 75MG TWICE PER DAY
     Route: 064
     Dates: start: 20091201, end: 20091201
  6. ALBUTEROL [Suspect]
     Indication: UTERINE CONTRACTIONS DURING PREGNANCY
     Dosage: 1MG THREE TIMES PER DAY
     Route: 064
     Dates: start: 20100109, end: 20100110
  7. VOGALENE [Suspect]
     Indication: VOMITING
     Dosage: 5MG THREE TIMES PER DAY
     Route: 064
     Dates: start: 20091116
  8. MONAZOL [Suspect]
     Indication: FUNGAL INFECTION
     Route: 064
     Dates: start: 20100216

REACTIONS (4)
  - UMBILICAL CORD AROUND NECK [None]
  - NEONATAL ASPHYXIA [None]
  - MATERNAL EXPOSURE DURING PREGNANCY [None]
  - APGAR SCORE LOW [None]
